FAERS Safety Report 15592182 (Version 2)
Quarter: 2019Q1

REPORT INFORMATION
  Report Type: Spontaneous
  Country: IN (occurrence: IN)
  Receive Date: 20181107
  Receipt Date: 20190107
  Transmission Date: 20190417
  Serious: Yes (Life-Threatening, Hospitalization)
  Sender: FDA-Public Use
  Company Number: IN-MYLANLABS-2018M1083831

PATIENT
  Age: 28 Year
  Sex: Female

DRUGS (15)
  1. CALCIUM GLUCONATE. [Suspect]
     Active Substance: CALCIUM GLUCONATE
     Indication: EMERGENCY CARE
     Route: 065
  2. VASOPRESSIN. [Suspect]
     Active Substance: VASOPRESSIN
     Indication: EMERGENCY CARE
     Dosage: 4.8 U/H
     Route: 065
  3. TELMISARTAN. [Suspect]
     Active Substance: TELMISARTAN
     Indication: PRODUCT USED FOR UNKNOWN INDICATION
     Dosage: 1200 MG, 30 TABLETS OF 40MG EACH
     Route: 048
  4. PHENYLEPHRINE [Suspect]
     Active Substance: PHENYLEPHRINE\PHENYLEPHRINE HYDROCHLORIDE
     Indication: EMERGENCY CARE
     Dosage: 14 MICROG/KG/MIN
     Route: 065
  5. GLUCAGON. [Suspect]
     Active Substance: GLUCAGON
     Indication: EMERGENCY CARE
     Dosage: 4 MG/H
     Route: 050
  6. NOREPINEPHRINE. [Suspect]
     Active Substance: NOREPINEPHRINE
     Indication: EMERGENCY CARE
     Dosage: 0.1 MICROG/KG/MIN
     Route: 065
  7. NOREPINEPHRINE. [Suspect]
     Active Substance: NOREPINEPHRINE
     Dosage: INCREASED TO 0.5 MICROG/KG/MIN
     Route: 065
  8. AMLODIPINE [Suspect]
     Active Substance: AMLODIPINE BESYLATE
     Indication: PRODUCT USED FOR UNKNOWN INDICATION
     Dosage: 300 MG
     Route: 048
  9. SODIUM CHLORIDE. [Suspect]
     Active Substance: SODIUM CHLORIDE
     Indication: EMERGENCY CARE
     Route: 050
  10. ACTIVATED CHARCOAL. [Suspect]
     Active Substance: ACTIVATED CHARCOAL
     Indication: EMERGENCY CARE
     Route: 050
  11. SMOFLIPID [Suspect]
     Active Substance: FISH OIL\MEDIUM-CHAIN TRIGLYCERIDES\OLIVE OIL\SOYBEAN OIL
     Indication: EMERGENCY CARE
     Dosage: 100 ML
     Route: 065
  12. CALCIUM GLUCONATE. [Suspect]
     Active Substance: CALCIUM GLUCONATE
     Dosage: 10 ML, QH
     Route: 050
  13. EPINEPHRINE. [Suspect]
     Active Substance: EPINEPHRINE
     Indication: EMERGENCY CARE
     Dosage: 0.5 MICROG/KG/MIN
     Route: 065
  14. INSULIN [Suspect]
     Active Substance: INSULIN NOS
     Indication: EMERGENCY CARE
     Dosage: HIGH DOSE INSULIN; HYPERINSULINEMIA-EUGLYCEMIA THERAPY
     Route: 050
  15. DEXTROSE. [Suspect]
     Active Substance: DEXTROSE
     Indication: EMERGENCY CARE
     Dosage: HYPERINSULINEMIA-EUGLYCEMIA THERAPY
     Route: 050

REACTIONS (9)
  - Circulatory collapse [Recovering/Resolving]
  - Toxicity to various agents [Recovering/Resolving]
  - Shock [Recovering/Resolving]
  - Blood pressure decreased [Recovering/Resolving]
  - Acute kidney injury [Recovering/Resolving]
  - Suicide attempt [Recovering/Resolving]
  - Intentional overdose [Recovering/Resolving]
  - Metabolic acidosis [Recovering/Resolving]
  - Drug ineffective [Unknown]
